FAERS Safety Report 12975712 (Version 1)
Quarter: 2016Q4

REPORT INFORMATION
  Report Type: Spontaneous
  Country: SE (occurrence: SE)
  Receive Date: 20161125
  Receipt Date: 20161125
  Transmission Date: 20170207
  Serious: Yes (Congenital Anomaly, Other)
  Sender: FDA-Public Use
  Company Number: SE-JUBILANT PHARMA LTD-2016SE000442

PATIENT
  Sex: Male
  Weight: 3.15 kg

DRUGS (7)
  1. SODIUM IODIDE I-131 [Suspect]
     Active Substance: SODIUM IODIDE I-131
     Dosage: 0.5 MBQ, SINGLE DOSE
     Route: 064
  2. THYROXINE SUBSTITUTION [Concomitant]
     Indication: HYPOTHYROIDISM
     Dosage: 0.1 MG, UNK
  3. THYROXINE SUBSTITUTION [Concomitant]
     Dosage: 0.125 MG, UNK
  4. TC99M PERTECHNETATE [Concomitant]
     Indication: SCAN THYROID GLAND
     Dosage: 150 MBQ, SINGLE DOSE
     Route: 064
  5. SODIUM IODIDE I-131 [Suspect]
     Active Substance: SODIUM IODIDE I-131
     Dosage: UNK MBQ, SINGLE DOSE
     Route: 064
  6. THIAMAZOL [Concomitant]
     Active Substance: METHIMAZOLE
     Indication: HYPERTHYROIDISM
     Dosage: UNKNOWN
     Route: 064
  7. SODIUM IODIDE I-131 [Suspect]
     Active Substance: SODIUM IODIDE I-131
     Indication: BASEDOW^S DISEASE
     Dosage: 500 MBQ, SINGLE DOSE
     Route: 064

REACTIONS (5)
  - Disturbance of thermoregulation of newborn [Recovered/Resolved]
  - Memory impairment [Unknown]
  - Disturbance in attention [Unknown]
  - Foetal exposure during pregnancy [Not Recovered/Not Resolved]
  - Congenital thyroid disorder [Not Recovered/Not Resolved]
